FAERS Safety Report 11391184 (Version 1)
Quarter: 2015Q3

REPORT INFORMATION
  Report Type: Spontaneous
  Country: US (occurrence: None)
  Receive Date: 20150814
  Receipt Date: 20150814
  Transmission Date: 20151125
  Serious: Yes (Hospitalization)
  Sender: FDA-Public Use
  Company Number: None

PATIENT
  Age: 62 Year
  Sex: Female
  Weight: 53.43 kg

DRUGS (2)
  1. ERBITUX [Suspect]
     Active Substance: CETUXIMAB
     Dates: end: 20150727
  2. TAXOTERE [Suspect]
     Active Substance: DOCETAXEL
     Dates: end: 20150727

REACTIONS (1)
  - Weight decreased [None]

NARRATIVE: CASE EVENT DATE: 20150720
